FAERS Safety Report 8928788 (Version 1)
Quarter: 2012Q4

REPORT INFORMATION
  Report Type: Spontaneous
  Country: US (occurrence: None)
  Receive Date: 20121126
  Receipt Date: 20121126
  Transmission Date: 20130627
  Serious: No
  Sender: FDA-Public Use
  Company Number: None

PATIENT
  Age: 78 Year
  Sex: Male

DRUGS (1)
  1. BOSULIF, 500 MG, PFIZER [Suspect]
     Route: 048
     Dates: start: 20121114, end: 20121119

REACTIONS (2)
  - Rash [None]
  - Diarrhoea [None]
